FAERS Safety Report 17233530 (Version 1)
Quarter: 2020Q1

REPORT INFORMATION
  Report Type: Spontaneous
  Country: JP (occurrence: JP)
  Receive Date: 20200105
  Receipt Date: 20200105
  Transmission Date: 20200409
  Serious: Yes (Hospitalization, Other)
  Sender: FDA-Public Use
  Company Number: NVSJ2019JP002975

PATIENT
  Age: 62 Year
  Sex: Male
  Weight: 50.7 kg

DRUGS (4)
  1. TACROLIMUS. [Concomitant]
     Active Substance: TACROLIMUS
     Indication: RENAL TRANSPLANT
     Dosage: UNK
     Route: 065
  2. TACROLIMUS. [Concomitant]
     Active Substance: TACROLIMUS
     Indication: IMMUNOSUPPRESSION
  3. CYCLOSPORINE. [Suspect]
     Active Substance: CYCLOSPORINE
     Indication: RENAL TRANSPLANT
     Dosage: UNK
     Route: 065
  4. CYCLOSPORINE. [Suspect]
     Active Substance: CYCLOSPORINE
     Indication: IMMUNOSUPPRESSION

REACTIONS (8)
  - Pyrexia [Unknown]
  - Abdominal adhesions [Unknown]
  - Retroperitoneal abscess [Unknown]
  - Diverticular perforation [Unknown]
  - Abdominal pain lower [Unknown]
  - Chronic kidney disease [Unknown]
  - Diverticulum intestinal [Unknown]
  - Diverticulitis [Unknown]
